FAERS Safety Report 13506299 (Version 1)
Quarter: 2017Q2

REPORT INFORMATION
  Report Type: Spontaneous
  Country: US (occurrence: US)
  Receive Date: 20170502
  Receipt Date: 20170502
  Transmission Date: 20170830
  Serious: No
  Sender: FDA-Public Use
  Company Number: US-ROCHE-1271798

PATIENT
  Sex: Male
  Weight: 101.24 kg

DRUGS (3)
  1. AVASTIN [Suspect]
     Active Substance: BEVACIZUMAB
     Indication: COLORECTAL CANCER STAGE IV
     Route: 042
     Dates: start: 20100726, end: 20130513
  2. 5-FU [Concomitant]
     Active Substance: FLUOROURACIL
     Route: 042
  3. IRINOTECAN [Concomitant]
     Active Substance: IRINOTECAN
     Route: 042
     Dates: start: 20100712, end: 20130513

REACTIONS (3)
  - Stomatitis [Unknown]
  - Mouth ulceration [Unknown]
  - Fatigue [Unknown]
